FAERS Safety Report 15948707 (Version 1)
Quarter: 2019Q1

REPORT INFORMATION
  Report Type: Spontaneous
  Country: GB (occurrence: GB)
  Receive Date: 20190212
  Receipt Date: 20190212
  Transmission Date: 20190417
  Serious: Yes (Disabling, Other)
  Sender: FDA-Public Use
  Company Number: GB-ACCORD-100424

PATIENT
  Age: 69 Year
  Sex: Female

DRUGS (14)
  1. NITRAZEPAM [Concomitant]
     Active Substance: NITRAZEPAM
     Dosage: STRENGTH: 5 MG?12 TABLET, ONE TO BE TAKEN AT NIGHT AS AND WHEN REQUIRED (ONLY NEEDING MAX 3/MONTH)
  2. RANITIDINE. [Concomitant]
     Active Substance: RANITIDINE
     Dosage: STRENGTH: 150 MG?60 TABLET?TAKE ONE NOCTE
  3. FOSTAIR [Concomitant]
     Active Substance: BECLOMETHASONE\FORMOTEROL
     Dosage: 100 MICROGRAMS/DOSE / 6 MICROGRAMS/DOSE INHALER?ONE PUFF TO BE INHALED TWICE A DAY.?1 X 120 DOSE
  4. ZAPAIN [Concomitant]
     Active Substance: ACETAMINOPHEN\CODEINE PHOSPHATE
     Dosage: STRENGTH: 30 MG/500 MG?112 TABLET?ONE OR TWO TO BE TAKEN 4 TIMES A DAY WHEN REQUIRED.
  5. SERTRALINE ACCORD [Suspect]
     Active Substance: SERTRALINE HYDROCHLORIDE
     Indication: ANXIETY
     Dosage: STRENGTH: 50 MG + 100 MG?DOSE: 50 MG + 100 MG
     Route: 048
     Dates: start: 20181129, end: 20190104
  6. LEVOTHYROXINE. [Concomitant]
     Active Substance: LEVOTHYROXINE
     Dosage: FOR LAST FOUR YEARS?STRENGTH: 100 MCG?56 TABLET?ONE TO BE TAKEN EACH DAY.
  7. PARACETAMOL [Concomitant]
     Active Substance: ACETAMINOPHEN
     Dosage: STRENGTH: 500 MG?100 TABLET?1-2 QDS PRN
  8. DOCUSATE/DOCUSATE CALCIUM/DOCUSATE POTASSIUM/DOCUSATE SODIUM [Concomitant]
     Dosage: STRENGTH: 100 MG?120 CAPSULE?TAKE 2 TWICE DAILY WHEN NEEDED
  9. ROSUVASTATIN/ROSUVASTATIN CALCIUM [Concomitant]
     Dosage: STRENGTH: 10 MG?56 TABLET?TAKE 1 TABLET AT NIGHT
  10. DIAZEPAM. [Concomitant]
     Active Substance: DIAZEPAM
     Dosage: FOR LAST FOUR YEARS?14 TABLET?ONE TO BE TAKEN TWICE A DAY AS REQUIRED
  11. HYDROXOCOBALAMIN [Concomitant]
     Active Substance: HYDROXOCOBALAMIN
     Dosage: STRENGTH: 1 MG/1ML?1 AMPOULE
  12. BISACODYL. [Concomitant]
     Active Substance: BISACODYL
     Dosage: STRENGTH: 5 MG?40 TABLET?TAKE TWO AT NIGHT AS NEEDED
  13. GABAPENTIN. [Concomitant]
     Active Substance: GABAPENTIN
     Dosage: STRENGTH: 100MG, 300MG?ONE TO BE TAKEN AT NIGHT (TOTAL DOSE 400 MG)?56 CAPSULE
  14. VENTOLIN [Concomitant]
     Active Substance: ALBUTEROL SULFATE
     Dosage: STRENGTH: 100MCG/DOSE ?1 X 200 DOSE?INHALE 2 DOSES AS NEEDED

REACTIONS (4)
  - Frequent bowel movements [Recovered/Resolved]
  - Nausea [Recovered/Resolved]
  - Diarrhoea [Recovered/Resolved]
  - Abdominal pain upper [Recovered/Resolved]

NARRATIVE: CASE EVENT DATE: 201812
